FAERS Safety Report 5361616-1 (Version None)
Quarter: 2007Q2

REPORT INFORMATION
  Report Type: 
  Country: None (occurrence: None)
  Receive Date: 20070530
  Receipt Date: 20070103
  Transmission Date: 20071010
  Serious: No
  Sender: FDA-Public Use
  Company Number: 2007PV027781

PATIENT
  Age: 61 Year
  Sex: Female

DRUGS (7)
  1. BYETTA [Suspect]
     Indication: DIABETES MELLITUS NON-INSULIN-DEPENDENT
     Dosage: 10;5 MCG;BID;SC
     Route: 058
     Dates: start: 20050901, end: 20051201
  2. BYETTA [Suspect]
     Indication: DIABETES MELLITUS NON-INSULIN-DEPENDENT
     Dosage: 10;5 MCG;BID;SC
     Route: 058
     Dates: start: 20051201
  3. LANTUS [Concomitant]
  4. GLUCOPHAGE [Concomitant]
  5. GLYBURIDE [Concomitant]
  6. PRECOSE [Concomitant]
  7. ACTOS [Concomitant]

REACTIONS (3)
  - DECREASED APPETITE [None]
  - NAUSEA [None]
  - WEIGHT DECREASED [None]
